FAERS Safety Report 7866225-8 (Version None)
Quarter: 2011Q4

REPORT INFORMATION
  Report Type: 
  Country: None (occurrence: None)
  Receive Date: 20111028
  Receipt Date: 20110513
  Transmission Date: 20120403
  Serious: No
  Sender: FDA-Public Use
  Company Number: US-GLAXOSMITHKLINE-A0927325A

PATIENT
  Age: 82 Year
  Sex: Female

DRUGS (7)
  1. NEBULIZER [Concomitant]
  2. OMEPRAZOLE [Concomitant]
  3. CARDIZEM [Concomitant]
  4. COUMADIN [Concomitant]
  5. LASIX [Concomitant]
  6. OXYGEN [Concomitant]
  7. ADVAIR DISKUS 100/50 [Suspect]
     Indication: ASTHMA
     Dosage: 1PUFF TWICE PER DAY
     Route: 055
     Dates: start: 20040101

REACTIONS (2)
  - APHONIA [None]
  - DYSPHONIA [None]
